FAERS Safety Report 23571537 (Version 1)
Quarter: 2024Q1

REPORT INFORMATION
  Report Type: Spontaneous
  Country: DE (occurrence: DE)
  Receive Date: 20240227
  Receipt Date: 20240227
  Transmission Date: 20240410
  Serious: Yes (Other)
  Sender: FDA-Public Use
  Company Number: DE-MODERNATX-MOC20240131000027

PATIENT
  Age: 56 Year
  Sex: Male

DRUGS (2)
  1. AMOXICILLIN [Suspect]
     Active Substance: AMOXICILLIN
     Indication: Product used for unknown indication
     Dosage: UNK (TID)
     Route: 065
     Dates: start: 202211
  2. SPIKEVAX (ELASOMERAN) [Suspect]
     Active Substance: ELASOMERAN
     Indication: COVID-19 prophylaxis
     Dosage: 1 DOSAGE FORM (DOSE 3)
     Route: 065
     Dates: start: 20220115

REACTIONS (22)
  - Mastoiditis [Unknown]
  - Rotator cuff syndrome [Unknown]
  - Cough [Unknown]
  - Nasal septum deviation [Unknown]
  - Rash [Unknown]
  - Vertigo [Unknown]
  - Epiglottic cyst [Unknown]
  - Infectious mononucleosis [Unknown]
  - Dizziness [Unknown]
  - Nasopharyngitis [Unknown]
  - Laryngitis [Unknown]
  - Oropharyngeal pain [Unknown]
  - Chondropathy [Unknown]
  - Bursitis [Unknown]
  - Headache [Unknown]
  - Dandruff [Unknown]
  - Arthralgia [Unknown]
  - Osteoarthritis [Unknown]
  - Dysphonia [Unknown]
  - Neck pain [Unknown]
  - Ocular discomfort [Unknown]
  - Tonsillitis [Unknown]

NARRATIVE: CASE EVENT DATE: 20221001
